FAERS Safety Report 16735029 (Version 2)
Quarter: 2019Q3

REPORT INFORMATION
  Report Type: Spontaneous
  Country: None (occurrence: ML)
  Receive Date: 20190823
  Receipt Date: 20190924
  Transmission Date: 20191005
  Serious: Yes (Other)
  Sender: FDA-Public Use
  Company Number: ML-POPULATION COUNCIL, INC.-2073571

PATIENT
  Age: 21 Year
  Sex: Female
  Weight: 42 kg

DRUGS (1)
  1. JADELLE [Suspect]
     Active Substance: LEVONORGESTREL
     Indication: CONTRACEPTION
     Route: 059
     Dates: start: 20171221, end: 20190809

REACTIONS (3)
  - Vaginal haemorrhage [None]
  - Drug ineffective [None]
  - Pregnancy with implant contraceptive [None]

NARRATIVE: CASE EVENT DATE: 201905
